FAERS Safety Report 6544034-X (Version None)
Quarter: 2010Q1

REPORT INFORMATION
  Report Type: 
  Country: None (occurrence: None)
  Receive Date: 20100119
  Receipt Date: 20100119
  Transmission Date: 20100710
  Serious: Yes (Other)
  Sender: FDA-Public Use
  Company Number: None

PATIENT
  Age: 56 Year
  Sex: Female
  Weight: 94.3482 kg

DRUGS (2)
  1. TYLENOL PM EXTRA STRENGTH MCNEIL-PPC INC. [Suspect]
     Indication: INSOMNIA
     Dosage: 2 CAPLETS AT BEDTIME { 8 IN 24 HOURS PO
     Route: 048
     Dates: start: 20100111, end: 20100112
  2. EXTRA STRENGTH TYLENOL PM [Concomitant]

REACTIONS (9)
  - ABDOMINAL DISTENSION [None]
  - ABDOMINAL PAIN UPPER [None]
  - CHEST PAIN [None]
  - MALAISE [None]
  - MYALGIA [None]
  - OROPHARYNGEAL PAIN [None]
  - PRODUCT QUALITY ISSUE [None]
  - VOMITING [None]
  - VOMITING PROJECTILE [None]
